FAERS Safety Report 12404163 (Version 2)
Quarter: 2016Q2

REPORT INFORMATION
  Report Type: Report from Study
  Country: US (occurrence: US)
  Receive Date: 20160525
  Receipt Date: 20160526
  Transmission Date: 20160815
  Serious: No
  Sender: FDA-Public Use
  Company Number: US-BAXALTA-2016BLT003729

PATIENT
  Sex: Female

DRUGS (3)
  1. HYQVIA [Suspect]
     Active Substance: HUMAN IMMUNOGLOBULIN G\HYALURONIDASE RECOMBINANT HUMAN
     Dosage: THIRD RAMP UP DOSE
     Route: 065
     Dates: start: 20160511, end: 20160511
  2. HYQVIA [Suspect]
     Active Substance: HUMAN IMMUNOGLOBULIN G\HYALURONIDASE RECOMBINANT HUMAN
     Indication: PRODUCT USED FOR UNKNOWN INDICATION
     Dosage: FIRST RAMP UP DOSE
     Route: 065
     Dates: start: 20160420, end: 20160420
  3. HYQVIA [Suspect]
     Active Substance: HUMAN IMMUNOGLOBULIN G\HYALURONIDASE RECOMBINANT HUMAN
     Dosage: SECOND RAMP UP DOSE
     Route: 065
     Dates: start: 20160427, end: 20160427

REACTIONS (1)
  - Salivary gland enlargement [Not Recovered/Not Resolved]

NARRATIVE: CASE EVENT DATE: 20160511
